FAERS Safety Report 7772970-5 (Version None)
Quarter: 2011Q3

REPORT INFORMATION
  Report Type: 
  Country: None (occurrence: None)
  Receive Date: 20110922
  Receipt Date: 20110127
  Transmission Date: 20111222
  Serious: No
  Sender: FDA-Public Use
  Company Number: US-ASTRAZENECA-2011SE05043

PATIENT
  Sex: Female

DRUGS (6)
  1. MOBIC [Concomitant]
     Indication: PAIN
  2. SEROQUEL XR [Suspect]
     Indication: INSOMNIA
     Route: 048
     Dates: start: 20100101
  3. SEROQUEL XR [Suspect]
     Indication: BIPOLAR DISORDER
     Route: 048
     Dates: start: 20100101
  4. ROXICODONE [Concomitant]
     Indication: PAIN
  5. HYDROCODONE BITARTRATE AND ACETAMINOPHEN [Concomitant]
     Indication: PAIN
  6. DIAZEPAM [Concomitant]
     Indication: APPETITE DISORDER

REACTIONS (4)
  - INSOMNIA [None]
  - DRUG DOSE OMISSION [None]
  - NO ADVERSE EVENT [None]
  - THERAPEUTIC RESPONSE UNEXPECTED [None]
